FAERS Safety Report 15657540 (Version 2)
Quarter: 2019Q2

REPORT INFORMATION
  Report Type: Spontaneous
  Country: US (occurrence: US)
  Receive Date: 20181126
  Receipt Date: 20190528
  Transmission Date: 20190711
  Serious: No
  Sender: FDA-Public Use
  Company Number: US-PFIZER INC-2016319185

PATIENT
  Age: 68 Year
  Sex: Female
  Weight: 62.59 kg

DRUGS (17)
  1. LYRICA [Suspect]
     Active Substance: PREGABALIN
     Indication: NEUROPATHY PERIPHERAL
     Dosage: 75 MG, 3X/DAY
     Route: 048
  2. ALENDRONATE [Concomitant]
     Active Substance: ALENDRONATE SODIUM
     Dosage: 70 MG, DAILY
     Route: 048
  3. TOLTERODINE [Concomitant]
     Active Substance: TOLTERODINE
     Dosage: 2 MG, DAILY
     Route: 048
  4. LOVASTATIN. [Concomitant]
     Active Substance: LOVASTATIN
     Dosage: 20 MG, 1X/DAY (AT BEDTIME)
     Route: 048
  5. PIROXICAM. [Concomitant]
     Active Substance: PIROXICAM
     Dosage: UNK
  6. CALCIUM [Concomitant]
     Active Substance: CALCIUM
     Dosage: UNK
  7. PEPCID [ALUMINIUM HYDROXIDE GEL, DRIED;MAGNESIUM CARBONATE] [Concomitant]
     Active Substance: ALUMINUM HYDROXIDE\MAGNESIUM CARBONATE
     Dosage: UNK, DAILY
     Route: 048
  8. DETROL LA [Concomitant]
     Active Substance: TOLTERODINE TARTRATE
     Dosage: 4 MG, 1X/DAY
     Route: 048
  9. LYRICA [Suspect]
     Active Substance: PREGABALIN
     Indication: NEUROPATHY PERIPHERAL
  10. NASONEX [Concomitant]
     Active Substance: MOMETASONE FUROATE
     Dosage: UNK, DAILY (2 SPRAYS EACH NOSTRIL DAILY)
     Route: 045
  11. TOLTERODINE [Concomitant]
     Active Substance: TOLTERODINE
     Dosage: 4 MG, DAILY
     Route: 048
  12. PAROXETINE. [Concomitant]
     Active Substance: PAROXETINE
     Dosage: 30 MG, DAILY
     Route: 048
  13. CALCIUM/VITAMIN D [CALCIUM;ERGOCALCIFEROL] [Concomitant]
     Dosage: UNK, DAILY (600 MG-200 UNITS)
     Route: 048
  14. ZANAFLEX [Concomitant]
     Active Substance: TIZANIDINE HYDROCHLORIDE
     Dosage: 4 MG, 3X/DAY
     Route: 048
  15. LOSARTAN. [Concomitant]
     Active Substance: LOSARTAN
     Dosage: 50 MG, DAILY
     Route: 048
  16. TIZANIDINE. [Concomitant]
     Active Substance: TIZANIDINE
     Dosage: UNK
  17. SYMBICORT [Concomitant]
     Active Substance: BUDESONIDE\FORMOTEROL FUMARATE DIHYDRATE
     Dosage: UNK, 2X/DAY (2 INHALATION TWO TIMES A DAY)

REACTIONS (18)
  - Feeling cold [Unknown]
  - Varicose vein [Unknown]
  - Hypersensitivity [Recovered/Resolved]
  - Pain [Unknown]
  - Intentional product misuse [Unknown]
  - Tremor [Unknown]
  - Chills [Unknown]
  - Kyphosis [Unknown]
  - Incontinence [Unknown]
  - Withdrawal syndrome [Unknown]
  - Skin discolouration [Unknown]
  - Nausea [Unknown]
  - Rash erythematous [Recovered/Resolved]
  - Hypoaesthesia [Unknown]
  - Vomiting [Unknown]
  - Disorientation [Unknown]
  - Dyspnoea [Unknown]
  - Body height decreased [Unknown]

NARRATIVE: CASE EVENT DATE: 20181028
